FAERS Safety Report 8450129 (Version 4)
Quarter: 2013Q1

REPORT INFORMATION
  Report Type: Spontaneous
  Country: ES (occurrence: ES)
  Receive Date: 20120309
  Receipt Date: 20130205
  Transmission Date: 20140127
  Serious: Yes (Life-Threatening, Hospitalization, Other)
  Sender: FDA-Public Use
  Company Number: ES-JNJFOC-20120301652

PATIENT
  Age: 65 Year
  Sex: Male
  Weight: 125 kg

DRUGS (7)
  1. STELARA [Suspect]
     Indication: PSORIASIS
     Route: 058
     Dates: start: 20100916, end: 20120105
  2. EMCONCOR [Concomitant]
     Indication: MYOCARDIAL ISCHAEMIA
     Route: 065
  3. AMLODIPINE [Concomitant]
     Indication: MYOCARDIAL ISCHAEMIA
     Route: 065
  4. SIMVASTATINE [Concomitant]
     Indication: DYSLIPIDAEMIA
     Route: 065
  5. METHOTREXATE [Concomitant]
     Indication: PSORIASIS
     Route: 065
  6. FOLIC ACID [Concomitant]
     Indication: PRODUCT USED FOR UNKNOWN INDICATION
     Route: 065
  7. ACETYLSALICYLIC ACID [Concomitant]
     Indication: MYOCARDIAL ISCHAEMIA
     Route: 065

REACTIONS (1)
  - Colorectal adenocarcinoma [Unknown]
